FAERS Safety Report 6456761-3 (Version None)
Quarter: 2009Q4

REPORT INFORMATION
  Report Type: 
  Country: None (occurrence: None)
  Receive Date: 20091119
  Receipt Date: 20091102
  Transmission Date: 20100525
  Serious: Yes (Other)
  Sender: FDA-Public Use
  Company Number: 2009AL006986

PATIENT
  Age: 54 Year
  Sex: Female

DRUGS (5)
  1. CITALOPRAM HYDROBROMIDE [Suspect]
     Indication: DEPRESSION
     Dosage: 20 MG;QD;UNK
  2. CLORAZEPATE DIPOTASSIUM [Concomitant]
  3. CYAMEMAZINE [Concomitant]
  4. ACAMEPROSATE [Concomitant]
  5. NICARDIPINE HYDROCHLORIDE [Concomitant]

REACTIONS (8)
  - AKINESIA [None]
  - BIPOLAR II DISORDER [None]
  - CATATONIA [None]
  - CONFUSIONAL STATE [None]
  - DRUG WITHDRAWAL SYNDROME [None]
  - INCOHERENT [None]
  - MUSCLE RIGIDITY [None]
  - MUTISM [None]
